FAERS Safety Report 6580876-2 (Version None)
Quarter: 2010Q1

REPORT INFORMATION
  Report Type: 
  Country: None (occurrence: None)
  Receive Date: 20100215
  Receipt Date: 20100209
  Transmission Date: 20100710
  Serious: Yes (Death)
  Sender: FDA-Public Use
  Company Number: JP-ELI_LILLY_AND_COMPANY-JP201001001083

PATIENT
  Sex: Female
  Weight: 42 kg

DRUGS (9)
  1. GEMZAR [Suspect]
     Indication: PANCREATIC CARCINOMA STAGE IV
     Dosage: 1350 MG, OTHER
     Route: 042
     Dates: start: 20091113, end: 20091113
  2. GEMZAR [Suspect]
     Dosage: 1080 MG, OTHER
     Route: 042
     Dates: start: 20091124, end: 20091204
  3. MUCOSTA [Concomitant]
     Indication: PROPHYLAXIS
     Dosage: 300 MG, DAILY (1/D)
     Route: 048
     Dates: end: 20091209
  4. NAUZELIN [Concomitant]
     Indication: PROPHYLAXIS
     Dosage: 30 MG, DAILY (1/D)
     Route: 048
     Dates: end: 20091209
  5. GASTER [Concomitant]
     Indication: DUODENAL ULCER
     Dosage: 40 MG, DAILY (1/D)
     Route: 048
     Dates: end: 20091209
  6. LOXONIN [Concomitant]
     Indication: ANALGESIC THERAPY
     Dosage: 180 MG, DAILY (1/D)
     Route: 048
     Dates: end: 20091209
  7. EXCELASE [Concomitant]
     Indication: PROPHYLAXIS
     Route: 048
     Dates: end: 20091209
  8. METHYCOBAL [Concomitant]
     Indication: HYPOAESTHESIA
     Dosage: 1500 UG, DAILY (1/D)
     Route: 048
     Dates: end: 20091209
  9. VITANEURIN /01072401/ [Concomitant]
     Indication: PROPHYLAXIS
     Dosage: 1 D/F, DAILY (1/D)
     Route: 048
     Dates: end: 20091209

REACTIONS (5)
  - INTERSTITIAL LUNG DISEASE [None]
  - PNEUMOCYSTIS JIROVECI PNEUMONIA [None]
  - RESPIRATORY FAILURE [None]
  - SECONDARY IMMUNODEFICIENCY [None]
  - THERAPEUTIC RESPONSE DECREASED [None]
